FAERS Safety Report 16553146 (Version 4)
Quarter: 2019Q3

REPORT INFORMATION
  Report Type: Report from Study
  Country: US (occurrence: US)
  Receive Date: 20190710
  Receipt Date: 20190730
  Transmission Date: 20191004
  Serious: Yes (Hospitalization)
  Sender: FDA-Public Use
  Company Number: US-GILEAD-2019-0417455

PATIENT
  Age: 62 Year
  Sex: Male
  Weight: 72.4 kg

DRUGS (3)
  1. SILDENAFIL [SILDENAFIL CITRATE] [Concomitant]
  2. ORENITRAM [Concomitant]
     Active Substance: TREPROSTINIL
  3. AMBRISENTAN [Suspect]
     Active Substance: AMBRISENTAN
     Indication: PULMONARY HYPERTENSION
     Dosage: 10 MG, QD
     Route: 048
     Dates: start: 2010

REACTIONS (3)
  - Dyspnoea [Unknown]
  - Fluid overload [Recovered/Resolved]
  - Headache [Unknown]

NARRATIVE: CASE EVENT DATE: 201907
